FAERS Safety Report 8777993 (Version 1)
Quarter: 2012Q4

REPORT INFORMATION
  Report Type: 
  Country: US (occurrence: US)
  Receive Date: 20120911
  Receipt Date: 20120911
  Transmission Date: 20130627
  Serious: Yes (Other)
  Sender: FDA-Public Use
  Company Number: US-PFIZER INC-2012220460

PATIENT
  Age: 82 Year
  Sex: Female
  Weight: 54.42 kg

DRUGS (3)
  1. ADVIL [Suspect]
     Indication: BACK PAIN
     Dosage: 200 mg, as needed
     Route: 048
     Dates: start: 20120905
  2. ADVIL [Suspect]
     Dosage: 400 mg (two 200mg), once a day
     Route: 048
  3. ATENOLOL [Concomitant]
     Indication: HYPERTENSION
     Dosage: UNK

REACTIONS (2)
  - Expired drug administered [Unknown]
  - Hypertension [Unknown]
